FAERS Safety Report 23237633 (Version 4)
Quarter: 2025Q2

REPORT INFORMATION
  Report Type: Report from Study
  Country: CA (occurrence: CA)
  Receive Date: 20231128
  Receipt Date: 20250626
  Transmission Date: 20250717
  Serious: Yes (Other)
  Sender: SANDOZ
  Company Number: CA-002147023-NVSC2021CA289188

PATIENT
  Age: 67 Year
  Sex: Male
  Weight: 215 kg

DRUGS (8)
  1. HUMIRA [Suspect]
     Active Substance: ADALIMUMAB
     Indication: Product used for unknown indication
     Dosage: 40 MG, Q2W
     Route: 058
     Dates: end: 20211213
  2. HYRIMOZ [Suspect]
     Active Substance: ADALIMUMAB-ADAZ
     Indication: Crohn^s disease
     Route: 058
  3. HYRIMOZ [Suspect]
     Active Substance: ADALIMUMAB-ADAZ
     Route: 058
  4. HYRIMOZ [Suspect]
     Active Substance: ADALIMUMAB-ADAZ
     Dosage: 80 MG, QW,40 MG SOLUTION FOR INJECTION IN PRE-FILLED PEN, START DATE: 15-JUN-2023
     Route: 058
  5. HYRIMOZ [Suspect]
     Active Substance: ADALIMUMAB-ADAZ
     Dosage: 80 MG, EVERY OTHER WEEK (PRE-FILLED SYRINGE)
     Route: 058
  6. HYRIMOZ [Suspect]
     Active Substance: ADALIMUMAB-ADAZ
     Route: 058
     Dates: start: 20210615
  7. PERINDOPRIL ARGININE [Concomitant]
     Active Substance: PERINDOPRIL ARGININE
     Indication: Product used for unknown indication
     Route: 065
  8. PERINDOPRIL [Concomitant]
     Active Substance: PERINDOPRIL
     Indication: Product used for unknown indication
     Route: 065

REACTIONS (24)
  - Rectal abscess [Unknown]
  - Mental impairment [Unknown]
  - Haematochezia [Unknown]
  - Crohn^s disease [Unknown]
  - Arthritis [Recovering/Resolving]
  - Increased appetite [Unknown]
  - Iron deficiency [Unknown]
  - Furuncle [Unknown]
  - General physical health deterioration [Unknown]
  - Abscess [Unknown]
  - Stress [Unknown]
  - Abdominal distension [Recovering/Resolving]
  - Anxiety [Unknown]
  - Weight increased [Unknown]
  - Muscle spasms [Unknown]
  - Frequent bowel movements [Unknown]
  - Influenza [Recovered/Resolved]
  - Nasopharyngitis [Unknown]
  - Therapy change [Unknown]
  - Product use issue [Unknown]
  - Inappropriate schedule of product administration [Unknown]
  - Off label use [Unknown]
  - Therapeutic product effect incomplete [Unknown]
  - Drug ineffective [Unknown]

NARRATIVE: CASE EVENT DATE: 20240121
